FAERS Safety Report 17389690 (Version 3)
Quarter: 2020Q2

REPORT INFORMATION
  Report Type: Spontaneous
  Country: US (occurrence: US)
  Receive Date: 20200207
  Receipt Date: 20200618
  Transmission Date: 20200713
  Serious: Yes (Other)
  Sender: FDA-Public Use
  Company Number: US-PFIZER INC-2020051395

PATIENT
  Age: 27 Year
  Sex: Male

DRUGS (1)
  1. XELJANZ [Suspect]
     Active Substance: TOFACITINIB CITRATE
     Indication: COLITIS ULCERATIVE
     Dosage: 5 MG, 2X/DAY
     Route: 048
     Dates: start: 201908

REACTIONS (6)
  - Drug ineffective [Unknown]
  - Vitamin D decreased [Unknown]
  - Condition aggravated [Recovered/Resolved]
  - Rectal haemorrhage [Recovered/Resolved]
  - Loss of personal independence in daily activities [Unknown]
  - Prescribed underdose [Unknown]

NARRATIVE: CASE EVENT DATE: 2019
